FAERS Safety Report 4296413-1 (Version None)
Quarter: 2004Q1

REPORT INFORMATION
  Report Type: 
  Country: None (occurrence: None)
  Receive Date: 20040213
  Receipt Date: 20040213
  Transmission Date: 20041129
  Serious: Yes (Hospitalization)
  Sender: FDA-Public Use
  Company Number: None

PATIENT
  Sex: Male
  Weight: 125.6464 kg

DRUGS (4)
  1. PACLITAXEL [Suspect]
     Indication: NON-SMALL CELL LUNG CANCER
     Dosage: 200MG/M2 INTRAVENOUS
     Route: 042
     Dates: start: 20040123, end: 20040123
  2. CARBOPLATIN [Suspect]
     Indication: NON-SMALL CELL LUNG CANCER
     Dosage: AUC 6 INTRAVENOUS
     Route: 042
     Dates: start: 20040123, end: 20040123
  3. CARDIZEM [Concomitant]
  4. COMBIVENT [Concomitant]

REACTIONS (1)
  - DYSPNOEA [None]
